FAERS Safety Report 5079227-4 (Version None)
Quarter: 2006Q3

REPORT INFORMATION
  Report Type: 
  Country: None (occurrence: None)
  Receive Date: 20060814
  Receipt Date: 20060803
  Transmission Date: 20061208
  Serious: Yes (Other)
  Sender: FDA-Public Use
  Company Number: HK-MERCK-0608USA01613

PATIENT
  Age: 45 Year
  Sex: Female

DRUGS (4)
  1. DECADRON [Suspect]
     Route: 065
     Dates: start: 20030401
  2. FLUDARABINE PHOSPHATE [Suspect]
     Route: 065
     Dates: start: 20030401
  3. MITOXANTRONE HYDROCHLORIDE [Suspect]
     Route: 065
     Dates: start: 20030401
  4. RITUXIMAB [Concomitant]
     Route: 065
     Dates: start: 20030401

REACTIONS (2)
  - ACUTE MYELOID LEUKAEMIA [None]
  - MYELODYSPLASTIC SYNDROME [None]
